FAERS Safety Report 10314831 (Version 2)
Quarter: 2014Q3

REPORT INFORMATION
  Report Type: Spontaneous
  Country: US (occurrence: US)
  Receive Date: 20140718
  Receipt Date: 20140718
  Transmission Date: 20150326
  Serious: Yes (Hospitalization, Other)
  Sender: FDA-Public Use
  Company Number: US-009507513-2010SP019235

PATIENT
  Sex: Female
  Weight: 99.79 kg

DRUGS (2)
  1. MAXZIDE [Suspect]
     Active Substance: HYDROCHLOROTHIAZIDE\TRIAMTERENE
     Indication: OEDEMA PERIPHERAL
  2. NUVARING [Suspect]
     Active Substance: ETHINYL ESTRADIOL\ETONOGESTREL
     Indication: CONTRACEPTION
     Route: 067
     Dates: start: 200802, end: 20080408

REACTIONS (13)
  - Asthma [Unknown]
  - Leiomyoma [Unknown]
  - Pulmonary embolism [Recovered/Resolved]
  - Migraine [Unknown]
  - Deep vein thrombosis [Recovered/Resolved]
  - Infection [Unknown]
  - Abortion missed [Recovered/Resolved]
  - Hypokalaemia [Unknown]
  - Pain [Unknown]
  - Unintended pregnancy [Recovered/Resolved]
  - Tricuspid valve incompetence [Unknown]
  - Thrombophlebitis [Unknown]
  - Peripheral venous disease [Unknown]

NARRATIVE: CASE EVENT DATE: 2008
